FAERS Safety Report 7099096-0 (Version None)
Quarter: 2010Q4

REPORT INFORMATION
  Report Type: 
  Country: None (occurrence: None)
  Receive Date: 20101112
  Receipt Date: 20101108
  Transmission Date: 20110411
  Serious: Yes (Hospitalization, Other)
  Sender: FDA-Public Use
  Company Number: A0888147A

PATIENT
  Sex: Female

DRUGS (1)
  1. LAMICTAL [Suspect]
     Dosage: 100MG PER DAY
     Route: 048
     Dates: start: 20100101, end: 20100101

REACTIONS (5)
  - GLOSSITIS [None]
  - GLOSSODYNIA [None]
  - LYMPHADENOPATHY [None]
  - PYREXIA [None]
  - TONGUE DISORDER [None]
